FAERS Safety Report 25898265 (Version 2)
Quarter: 2025Q4

REPORT INFORMATION
  Report Type: Spontaneous
  Country: GB (occurrence: GB)
  Receive Date: 20251008
  Receipt Date: 20251024
  Transmission Date: 20260117
  Serious: Yes (Other)
  Sender: BAUSCH AND LOMB
  Company Number: GB-PFIZERINC-PV202500082165

PATIENT
  Age: 6 Decade
  Sex: Male

DRUGS (7)
  1. DEXAMETHASONE SODIUM PHOSPHATE [Suspect]
     Active Substance: DEXAMETHASONE SODIUM PHOSPHATE
     Indication: Colon cancer
     Dosage: UNK
  2. IRINOTECAN HYDROCHLORIDE [Suspect]
     Active Substance: IRINOTECAN HYDROCHLORIDE
     Indication: Colon cancer
     Dosage: UNK
  3. DOXYCYCLINE [Suspect]
     Active Substance: DOXYCYCLINE
     Indication: Colon cancer
     Dosage: UNK
  4. DOMPERIDONE [Suspect]
     Active Substance: DOMPERIDONE
     Indication: Colon cancer
     Dosage: UNK
  5. ONDANSETRON [Suspect]
     Active Substance: ONDANSETRON
     Indication: Colon cancer
     Dosage: UNK
  6. ASPIRIN [Concomitant]
     Active Substance: ASPIRIN
     Indication: Product used for unknown indication
     Dosage: UNKNOWN
  7. CETUXIMAB [Suspect]
     Active Substance: CETUXIMAB
     Indication: Product used for unknown indication

REACTIONS (30)
  - Arrhythmia [Unknown]
  - Metastases to lymph nodes [Unknown]
  - Malignant neoplasm progression [Unknown]
  - Colon cancer [Unknown]
  - Palpitations [Unknown]
  - Vitreous floaters [Unknown]
  - Paraesthesia [Unknown]
  - Fatigue [Not Recovered/Not Resolved]
  - Acne [Unknown]
  - Constipation [Unknown]
  - Alopecia [Unknown]
  - Diarrhoea [Not Recovered/Not Resolved]
  - Dry skin [Unknown]
  - Skin fissures [Unknown]
  - Dysphonia [Unknown]
  - Dyspnoea [Unknown]
  - Visual impairment [Recovering/Resolving]
  - Disorientation [Unknown]
  - Oropharyngeal pain [Unknown]
  - Wound infection [Unknown]
  - Dyspepsia [Unknown]
  - Nasopharyngitis [Unknown]
  - Chapped lips [Unknown]
  - Lip pain [Unknown]
  - Stomatitis [Unknown]
  - White blood cell count decreased [Unknown]
  - Discomfort [Unknown]
  - Toothache [Unknown]
  - Pain in extremity [Unknown]
  - Off label use [Unknown]

NARRATIVE: CASE EVENT DATE: 20250701
